FAERS Safety Report 5039361-1 (Version None)
Quarter: 2006Q2

REPORT INFORMATION
  Report Type: 
  Country: None (occurrence: None)
  Receive Date: 20060623
  Receipt Date: 20060613
  Transmission Date: 20061013
  Serious: Yes (Other)
  Sender: FDA-Public Use
  Company Number: 2006075089

PATIENT
  Sex: Female

DRUGS (4)
  1. LYRICA [Suspect]
     Indication: NEUROPATHY
     Dosage: 300 MG (150 MG, 2 IN 1 D),
  2. PERCOCET [Concomitant]
  3. SYNTHROID [Concomitant]
  4. LANOXIN [Concomitant]

REACTIONS (2)
  - DYSPNOEA [None]
  - GENERALISED OEDEMA [None]
